FAERS Safety Report 9806217 (Version 3)
Quarter: 2014Q1

REPORT INFORMATION
  Report Type: Spontaneous
  Country: CN (occurrence: CN)
  Receive Date: 20140109
  Receipt Date: 20140218
  Transmission Date: 20141002
  Serious: No
  Sender: FDA-Public Use
  Company Number: CN-ASTRAZENECA-2014SE00299

PATIENT
  Age: 83 Year
  Sex: Male

DRUGS (7)
  1. NEXIUM [Suspect]
     Indication: GASTROOESOPHAGEAL REFLUX DISEASE
     Dosage: HALF OF ONE TABLET, OCCASIONALLY
     Route: 048
     Dates: start: 201305
  2. NEXIUM [Suspect]
     Indication: HIATUS HERNIA
     Dosage: HALF OF ONE TABLET, OCCASIONALLY
     Route: 048
     Dates: start: 201305
  3. NEXIUM [Suspect]
     Indication: GASTROOESOPHAGEAL REFLUX DISEASE
     Route: 048
     Dates: start: 201310
  4. NEXIUM [Suspect]
     Indication: HIATUS HERNIA
     Route: 048
     Dates: start: 201310
  5. DANFO WEIERKANG GRANULES [Concomitant]
     Indication: GASTRITIS
     Route: 048
  6. MOSAPRIDE [Concomitant]
     Indication: IMPAIRED GASTRIC EMPTYING
     Route: 048
  7. MOSAPRIDE [Concomitant]
     Indication: GASTRIC HYPERMOTILITY
     Route: 048

REACTIONS (6)
  - Regurgitation [Recovered/Resolved]
  - Dyspepsia [Recovered/Resolved]
  - Abdominal distension [Not Recovered/Not Resolved]
  - Gastrooesophageal reflux disease [Recovering/Resolving]
  - Activities of daily living impaired [Unknown]
  - Intentional drug misuse [Unknown]
